FAERS Safety Report 6173012-8 (Version None)
Quarter: 2009Q2

REPORT INFORMATION
  Report Type: 
  Country: None (occurrence: None)
  Receive Date: 20090430
  Receipt Date: 20090428
  Transmission Date: 20091009
  Serious: Yes (Death, Other)
  Sender: FDA-Public Use
  Company Number: CA-ROXANE LABORATORIES, INC.-2009-RO-00409RO

PATIENT
  Age: 16 Year
  Sex: Male

DRUGS (4)
  1. MERCAPTOPURINE [Suspect]
     Indication: ACUTE PROMYELOCYTIC LEUKAEMIA
  2. METHOTREXATE [Suspect]
     Indication: ACUTE PROMYELOCYTIC LEUKAEMIA
     Route: 048
  3. ATRA [Suspect]
     Indication: ACUTE PROMYELOCYTIC LEUKAEMIA
  4. ATRA [Suspect]

REACTIONS (2)
  - LEUKAEMIA RECURRENT [None]
  - OESOPHAGEAL STENOSIS [None]
